FAERS Safety Report 8143287-4 (Version None)
Quarter: 2012Q1

REPORT INFORMATION
  Report Type: 
  Country: None (occurrence: None)
  Receive Date: 20120217
  Receipt Date: 20120211
  Transmission Date: 20120608
  Serious: Yes (Other)
  Sender: FDA-Public Use
  Company Number: US-BAYER-2011-063256

PATIENT
  Age: 42 Year
  Sex: Female
  Weight: 104.31 kg

DRUGS (4)
  1. YAZ [Suspect]
     Indication: MENSTRUAL CYCLE MANAGEMENT
     Dosage: UNK
     Dates: start: 20020101, end: 20100128
  2. YASMIN [Suspect]
     Indication: CONTRACEPTION
     Dosage: UNK
     Dates: start: 20020101, end: 20100128
  3. LEVOTHYROXINE SODIUM [Concomitant]
     Indication: HYPOTHYROIDISM
     Dosage: 50 MCG/L, DAILY
     Route: 048
     Dates: start: 19980101
  4. LEVOXYL [Concomitant]
     Indication: HYPOTHYROIDISM
     Dosage: 50 MCG/L, DAILY
     Route: 048
     Dates: start: 19980101

REACTIONS (5)
  - GENERAL PHYSICAL HEALTH DETERIORATION [None]
  - EMOTIONAL DISTRESS [None]
  - PAIN [None]
  - DEEP VEIN THROMBOSIS [None]
  - ANXIETY [None]
